FAERS Safety Report 9153032 (Version 4)
Quarter: 2013Q4

REPORT INFORMATION
  Report Type: Spontaneous
  Country: CA (occurrence: CA)
  Receive Date: 20130311
  Receipt Date: 20131211
  Transmission Date: 20140711
  Serious: Yes (Other)
  Sender: FDA-Public Use
  Company Number: CA-AMGEN-CANSP2013015866

PATIENT
  Age: 33 Year
  Sex: Male

DRUGS (6)
  1. ENBREL [Suspect]
     Indication: RHEUMATOID ARTHRITIS
     Dosage: 50 MG, QWK
     Route: 058
     Dates: start: 20130129
  2. METHOTREXATE [Suspect]
     Indication: PRODUCT USED FOR UNKNOWN INDICATION
     Dosage: 10 MG, QWK
     Route: 065
  3. METHOTREXATE [Suspect]
     Dosage: 2 EVERY 1 MONTH
     Route: 065
  4. METHOTREXATE [Suspect]
     Dosage: 10 MG, 2 TIMES/WK
     Route: 065
  5. DICLOFENAC [Concomitant]
     Dosage: 75 MG, QD 1 TABLET
  6. LANSOPRAZOLE [Concomitant]
     Dosage: 30 MG, QD, 1 TABLET

REACTIONS (6)
  - Dyspnoea [Not Recovered/Not Resolved]
  - Pruritus generalised [Not Recovered/Not Resolved]
  - Fatigue [Not Recovered/Not Resolved]
  - Erythema [Not Recovered/Not Resolved]
  - Rash [Not Recovered/Not Resolved]
  - Injection site pain [Not Recovered/Not Resolved]
